FAERS Safety Report 6469516-0 (Version None)
Quarter: 2009Q4

REPORT INFORMATION
  Report Type: 
  Country: None (occurrence: None)
  Receive Date: 20091203
  Receipt Date: 20091124
  Transmission Date: 20100525
  Serious: Yes (Hospitalization)
  Sender: FDA-Public Use
  Company Number: JP-PFIZER INC-2009303331

PATIENT
  Age: 57 Year
  Sex: Male
  Weight: 64.6 kg

DRUGS (15)
  1. SUNITINIB MALATE [Suspect]
     Indication: RENAL CELL CARCINOMA
     Dosage: 37.5 MG, 1X/DAY
     Route: 048
     Dates: start: 20090403
  2. SULTANOL [Concomitant]
     Dosage: UNK
     Route: 055
  3. FLUTIDE [Concomitant]
     Dosage: UNK
     Route: 055
  4. ADJUST-A [Concomitant]
     Dosage: UNK
     Route: 048
  5. MONILAC [Concomitant]
     Dosage: UNK
     Route: 048
  6. GABAPENTIN [Concomitant]
     Dosage: UNK
     Route: 048
  7. LANDSEN [Concomitant]
     Dosage: UNK
     Route: 048
  8. PRIMPERAN TAB [Concomitant]
     Dosage: UNK
     Route: 048
  9. TAKEPRON [Concomitant]
     Dosage: UNK
     Route: 048
  10. OXYCODONE HYDROCHLORIDE [Concomitant]
     Dosage: UNK
     Route: 048
  11. OXINORM [Concomitant]
     Dosage: UNK
     Route: 048
  12. AMLODIPINE [Concomitant]
     Dosage: UNK
     Route: 048
     Dates: start: 20090410
  13. NU LOTAN [Concomitant]
     Dosage: UNK
     Route: 048
     Dates: start: 20090413
  14. ADALAT [Concomitant]
     Dosage: UNK
     Route: 048
     Dates: start: 20090522
  15. CALONAL [Concomitant]
     Dosage: UNK
     Route: 048
     Dates: start: 20090603

REACTIONS (1)
  - PNEUMATOSIS INTESTINALIS [None]
